FAERS Safety Report 8193781-5 (Version None)
Quarter: 2012Q1

REPORT INFORMATION
  Report Type: 
  Country: None (occurrence: None)
  Receive Date: 20120308
  Receipt Date: 20120227
  Transmission Date: 20120608
  Serious: Yes (Hospitalization, Other)
  Sender: FDA-Public Use
  Company Number: BR-BRISTOL-MYERS SQUIBB COMPANY-16426728

PATIENT
  Age: 77 Year
  Sex: Female
  Weight: 72 kg

DRUGS (5)
  1. IRBESARTAN [Suspect]
     Indication: HYPERTENSION
     Dosage: 1 DF:1 TABS IN MORNING/DAY
     Route: 048
     Dates: start: 20000101
  2. LEVOTHYROXINE SODIUM [Concomitant]
     Indication: HYPOTHYROIDISM
     Dosage: LEVOTHYROXINE 125MCG TABS 1 TAB/DAY IN FASTING
     Route: 048
     Dates: start: 20060101
  3. ATENOLOL [Concomitant]
     Indication: HYPERTENSION
     Dosage: ATENOLOL TABS -502MG 1DF:1 TAB IN MRNG
     Route: 048
     Dates: start: 20000101
  4. METFORMIN HYDROCHLORIDE [Concomitant]
     Indication: DIABETES MELLITUS
     Dosage: 1 DF:GLIFAGE TABS .2 TABS AFTER DINNNER
     Route: 048
     Dates: start: 20100101
  5. ALDACTONE [Concomitant]
     Indication: HYPERTENSION
     Dosage: ALDACTONE 25 MG TABS 1 DF: 1  TABS IN MRNG
     Route: 048
     Dates: start: 20000101

REACTIONS (1)
  - CHOLECYSTITIS [None]
